FAERS Safety Report 5274109-7 (Version None)
Quarter: 2007Q1

REPORT INFORMATION
  Report Type: 
  Country: None (occurrence: None)
  Receive Date: 20070323
  Receipt Date: 20070315
  Transmission Date: 20070707
  Serious: Yes (Other)
  Sender: FDA-Public Use
  Company Number: US-ROCHE-487647

PATIENT
  Age: 25 Year
  Sex: Female

DRUGS (2)
  1. ACCUTANE [Suspect]
     Indication: ACNE
     Dosage: PATIENT WAS ON A COURSE OF ACCUTANE THREE YEARS AGO.
     Route: 065
     Dates: start: 20040615, end: 20040615
  2. ACCUTANE [Suspect]
     Dosage: PATIENT TOOK A COURSE OF ACCUTANE WHEN SHE WAS AN ADOLESCENT (DATES NOT PROVIDED).
     Route: 065

REACTIONS (4)
  - ACNE [None]
  - ANOREXIA [None]
  - DEPRESSION [None]
  - SUICIDAL IDEATION [None]
